FAERS Safety Report 14703198 (Version 1)
Quarter: 2018Q2

REPORT INFORMATION
  Report Type: Spontaneous
  Country: DE (occurrence: DE)
  Receive Date: 20180402
  Receipt Date: 20180402
  Transmission Date: 20180711
  Serious: Yes (Other)
  Sender: FDA-Public Use
  Company Number: DE-SUN PHARMACEUTICAL INDUSTRIES LTD-2018RR-168898

PATIENT
  Age: 46 Year
  Sex: Male
  Weight: 98 kg

DRUGS (1)
  1. OXALIPLATIN SUN 5 MG/ML CONCENTRATE FOR SOLUTION FOR INFUSION [Suspect]
     Active Substance: OXALIPLATIN
     Indication: PRODUCT USED FOR UNKNOWN INDICATION
     Dosage: 286 MG, UNK
     Route: 042
     Dates: start: 20180129, end: 20180129

REACTIONS (3)
  - Heart rate increased [Recovering/Resolving]
  - Hyperthermia [Recovering/Resolving]
  - Therapy cessation [Recovering/Resolving]

NARRATIVE: CASE EVENT DATE: 20180129
